FAERS Safety Report 14937296 (Version 1)
Quarter: 2018Q2

REPORT INFORMATION
  Report Type: Spontaneous
  Country: FR (occurrence: FR)
  Receive Date: 20180525
  Receipt Date: 20180525
  Transmission Date: 20180711
  Serious: Yes (Other)
  Sender: FDA-Public Use
  Company Number: FR-MERCK KGAA-2048435

PATIENT
  Age: 67 Year
  Sex: Female
  Weight: 79 kg

DRUGS (1)
  1. NOVOTHYROX [Suspect]
     Active Substance: LEVOTHYROXINE SODIUM
     Indication: HYPOTHYROIDISM
     Route: 048
     Dates: start: 20170426, end: 20170908

REACTIONS (7)
  - Blood thyroid stimulating hormone normal [Recovered/Resolved]
  - Headache [Not Recovered/Not Resolved]
  - Alopecia [Not Recovered/Not Resolved]
  - Affective disorder [Not Recovered/Not Resolved]
  - Myalgia [Not Recovered/Not Resolved]
  - Fatigue [Not Recovered/Not Resolved]
  - Weight increased [Not Recovered/Not Resolved]

NARRATIVE: CASE EVENT DATE: 20170503
